FAERS Safety Report 20684067 (Version 1)
Quarter: 2022Q2

REPORT INFORMATION
  Report Type: Spontaneous
  Country: GB (occurrence: GB)
  Receive Date: 20220407
  Receipt Date: 20220407
  Transmission Date: 20220720
  Serious: Yes (Other)
  Sender: FDA-Public Use
  Company Number: GB-MHRA-MED-202203272218014800-XHNTM

PATIENT
  Age: 47 Year
  Sex: Female
  Weight: 79 kg

DRUGS (12)
  1. GABAPENTIN [Suspect]
     Active Substance: GABAPENTIN
     Indication: Adverse drug reaction
     Dosage: 900 MILLIGRAM DAILY;
     Dates: start: 20220324
  2. GABAPENTIN [Suspect]
     Active Substance: GABAPENTIN
     Indication: Neuralgia
  3. IBUPROFEN [Concomitant]
     Active Substance: IBUPROFEN
     Indication: Adverse drug reaction
     Dates: start: 2018
  4. IBUPROFEN [Concomitant]
     Active Substance: IBUPROFEN
     Indication: Pelvic pain
  5. IBUPROFEN [Concomitant]
     Active Substance: IBUPROFEN
     Indication: Abdominal pain
  6. MIRENA [Concomitant]
     Active Substance: LEVONORGESTREL
     Indication: Endometriosis
     Dates: start: 201803
  7. ACETAMINOPHEN [Concomitant]
     Active Substance: ACETAMINOPHEN
     Indication: Adverse drug reaction
     Dates: start: 2018
  8. ACETAMINOPHEN [Concomitant]
     Active Substance: ACETAMINOPHEN
     Indication: Pelvic pain
  9. ACETAMINOPHEN [Concomitant]
     Active Substance: ACETAMINOPHEN
     Indication: Abdominal pain
  10. SENNA [Concomitant]
     Active Substance: SENNA LEAF\SENNOSIDES\SENNOSIDES A AND B
     Indication: Adverse drug reaction
     Dates: start: 202102
  11. SENNA [Concomitant]
     Active Substance: SENNA LEAF\SENNOSIDES\SENNOSIDES A AND B
     Indication: Irritable bowel syndrome
  12. SERTRALINE [Concomitant]
     Active Substance: SERTRALINE HYDROCHLORIDE
     Indication: Depression
     Dates: start: 201903

REACTIONS (8)
  - Dizziness postural [Recovered/Resolved]
  - Back pain [Not Recovered/Not Resolved]
  - Clumsiness [Recovering/Resolving]
  - Somnolence [Recovered/Resolved]
  - Confusional state [Recovered/Resolved]
  - Headache [Recovered/Resolved]
  - Affect lability [Recovered/Resolved]
  - Adverse drug reaction [Recovered/Resolved]

NARRATIVE: CASE EVENT DATE: 20220324
